FAERS Safety Report 4852810-4 (Version None)
Quarter: 2005Q4

REPORT INFORMATION
  Report Type: 
  Country: None (occurrence: None)
  Receive Date: 20051209
  Receipt Date: 20051130
  Transmission Date: 20060501
  Serious: Yes (Death, Hospitalization)
  Sender: FDA-Public Use
  Company Number: 083-20785-05120095

PATIENT
  Age: 63 Year
  Sex: Female

DRUGS (3)
  1. THALIDOMIDE (THALIDOMIDE) (UNKNOWN) [Suspect]
     Indication: MULTIPLE MYELOMA
     Dosage: 100-200 MG, QD, ORAL
     Route: 048
     Dates: start: 20031001, end: 20040501
  2. DEXAMETHASONE [Suspect]
     Dosage: 40 MG, QD, DAYS 1-4, ORAL
     Route: 048
     Dates: start: 20031001
  3. LOW-WEIGHT HEPARIN (HEPARIN) [Concomitant]

REACTIONS (10)
  - ASTHENIA [None]
  - CARDIAC FAILURE [None]
  - CARDIOMEGALY [None]
  - DISEASE PROGRESSION [None]
  - DIZZINESS [None]
  - DYSPNOEA [None]
  - PULMONARY HYPERTENSION [None]
  - RESPIRATORY FAILURE [None]
  - TRICUSPID VALVE INCOMPETENCE [None]
  - VENTRICULAR HYPERTROPHY [None]
